FAERS Safety Report 19447674 (Version 1)
Quarter: 2021Q2

REPORT INFORMATION
  Report Type: Spontaneous
  Country: US (occurrence: US)
  Receive Date: 20210621
  Receipt Date: 20210621
  Transmission Date: 20210717
  Serious: Yes (Death)
  Sender: FDA-Public Use
  Company Number: None

PATIENT
  Age: 70 Year
  Sex: Male

DRUGS (9)
  1. CLOPIDOGREL [Concomitant]
     Active Substance: CLOPIDOGREL BISULFATE
  2. HUMIRA [Suspect]
     Active Substance: ADALIMUMAB
     Indication: OPEN ANGLE GLAUCOMA
     Route: 058
     Dates: start: 20180201
  3. BRIMONIDINE [Concomitant]
     Active Substance: BRIMONIDINE TARTRATE
  4. TRAVOPROST. [Concomitant]
     Active Substance: TRAVOPROST
  5. AMOXICILLIN. [Concomitant]
     Active Substance: AMOXICILLIN
  6. LISINOPRIL. [Concomitant]
     Active Substance: LISINOPRIL
  7. TB SYRINGE [Concomitant]
  8. METHOTREXATE. [Concomitant]
     Active Substance: METHOTREXATE
  9. DORZOLAMIDE [Concomitant]
     Active Substance: DORZOLAMIDE

REACTIONS (1)
  - Death [None]
